FAERS Safety Report 4281276-0 (Version None)
Quarter: 2004Q1

REPORT INFORMATION
  Report Type: 
  Country: None (occurrence: None)
  Receive Date: 20040123
  Receipt Date: 20031201
  Transmission Date: 20041129
  Serious: No
  Sender: FDA-Public Use
  Company Number: DL2003214

PATIENT
  Age: 22 Year
  Sex: Female

DRUGS (2)
  1. MIFEPRISTONE TABLETS, 200 MG (DANCO LABS) [Suspect]
     Indication: ABORTION INDUCED
     Dosage: 200MG, ORAL
     Route: 048
     Dates: start: 20030820
  2. MISOPROSTOL [Suspect]
     Dosage: 800 MG, VAGINAL
     Route: 067
     Dates: start: 20030822

REACTIONS (1)
  - HAEMORRHAGE [None]
